FAERS Safety Report 12094526 (Version 2)
Quarter: 2016Q1

REPORT INFORMATION
  Report Type: Report from Study
  Country: US (occurrence: US)
  Receive Date: 20160219
  Receipt Date: 20160302
  Transmission Date: 20160526
  Serious: Yes (Other)
  Sender: FDA-Public Use
  Company Number: US-AMGEN-USASP2016019859

PATIENT
  Age: 71 Year
  Sex: Female

DRUGS (1)
  1. ENBREL [Suspect]
     Active Substance: ETANERCEPT
     Indication: PSORIASIS
     Dosage: 50 MG, 2 TIMES/WK
     Route: 065
     Dates: start: 201001

REACTIONS (5)
  - Irritable bowel syndrome [Unknown]
  - Raynaud^s phenomenon [Unknown]
  - Intentional product misuse [Unknown]
  - Autoimmune disorder [Unknown]
  - Dry eye [Unknown]

NARRATIVE: CASE EVENT DATE: 2009
